FAERS Safety Report 6997369-0 (Version None)
Quarter: 2010Q3

REPORT INFORMATION
  Report Type: 
  Country: None (occurrence: None)
  Receive Date: 20100918
  Receipt Date: 20091007
  Transmission Date: 20110219
  Serious: No
  Sender: FDA-Public Use
  Company Number: US-WYE-H11499709

PATIENT
  Sex: Female

DRUGS (2)
  1. PRISTIQ [Suspect]
     Indication: MAJOR DEPRESSION
     Route: 048
     Dates: start: 20090601, end: 20090801
  2. PRISTIQ [Suspect]
     Route: 048
     Dates: start: 20090901, end: 20091002

REACTIONS (1)
  - HYPONATRAEMIA [None]
